FAERS Safety Report 4882218-7 (Version None)
Quarter: 2006Q1

REPORT INFORMATION
  Report Type: 
  Country: None (occurrence: None)
  Receive Date: 20060117
  Receipt Date: 20051011
  Transmission Date: 20060701
  Serious: Yes (Hospitalization)
  Sender: FDA-Public Use
  Company Number: US-MERCK-0510USA06468

PATIENT
  Age: 50 Year
  Sex: Male
  Weight: 90 kg

DRUGS (4)
  1. VIOXX [Suspect]
     Indication: ARTHRALGIA
     Route: 048
     Dates: start: 20011001, end: 20030401
  2. VIOXX [Suspect]
     Route: 048
     Dates: start: 20011001, end: 20030401
  3. VIOXX [Suspect]
     Route: 048
     Dates: start: 20011001, end: 20030401
  4. VIOXX [Suspect]
     Route: 048
     Dates: start: 20011001, end: 20030401

REACTIONS (3)
  - DEPRESSION [None]
  - ISCHAEMIC STROKE [None]
  - OVERDOSE [None]
